FAERS Safety Report 8202963-5 (Version None)
Quarter: 2012Q1

REPORT INFORMATION
  Report Type: 
  Country: None (occurrence: None)
  Receive Date: 20120312
  Receipt Date: 20120307
  Transmission Date: 20120608
  Serious: Yes (Other)
  Sender: FDA-Public Use
  Company Number: US-PFIZER INC-2012061689

PATIENT
  Sex: Female
  Weight: 56.689 kg

DRUGS (3)
  1. DEPAKOTE [Concomitant]
     Dosage: 500 MG, 2X/DAY
  2. PRIMIDONE [Concomitant]
     Dosage: 50 MG, 2X/DAY
  3. LYRICA [Suspect]
     Indication: FIBROMYALGIA
     Dosage: 50 MG, 2X/DAY
     Route: 048
     Dates: start: 20111114, end: 20111117

REACTIONS (4)
  - NIGHT BLINDNESS [None]
  - FEAR [None]
  - MOOD ALTERED [None]
  - DRUG INTOLERANCE [None]
